FAERS Safety Report 4752514-2 (Version None)
Quarter: 2005Q3

REPORT INFORMATION
  Report Type: 
  Country: None (occurrence: None)
  Receive Date: 20050825
  Receipt Date: 20050303
  Transmission Date: 20060218
  Serious: Yes (Hospitalization, Disabling, Other)
  Sender: FDA-Public Use
  Company Number: PHHO2005JP03872

PATIENT
  Age: 75 Year
  Sex: Female
  Weight: 58 kg

DRUGS (8)
  1. DIOVAN [Suspect]
     Indication: HYPERTENSION
     Dosage: 40 MG, QD
     Route: 048
     Dates: start: 20040121, end: 20040803
  2. AMLODIN [Suspect]
     Dosage: 5 MG, UNK
  3. CARDENALIN [Suspect]
     Dosage: 3 MG, QD
     Route: 048
  4. NITOROL [Suspect]
     Dosage: 40 MG, QD
     Route: 048
  5. WARFARIN [Concomitant]
     Indication: ATRIAL FIBRILLATION
     Dosage: 3 MG, UNK
     Route: 048
  6. DORNER [Concomitant]
     Dosage: 120 MG, UNK
     Route: 048
  7. URINORM [Concomitant]
     Dosage: 50 MG, UNK
  8. LASIX [Concomitant]
     Dosage: 20 MG, UNK
     Route: 048

REACTIONS (8)
  - APHASIA [None]
  - ATRIAL FIBRILLATION [None]
  - CARDIAC FAILURE CONGESTIVE [None]
  - CEREBRAL INFARCTION [None]
  - DEPRESSED LEVEL OF CONSCIOUSNESS [None]
  - HEMIPLEGIA [None]
  - LOSS OF CONSCIOUSNESS [None]
  - PNEUMONIA [None]
